FAERS Safety Report 19032679 (Version 2)
Quarter: 2021Q1

REPORT INFORMATION
  Report Type: Spontaneous
  Country: US (occurrence: US)
  Receive Date: 20210319
  Receipt Date: 20210327
  Transmission Date: 20210420
  Serious: No
  Sender: FDA-Public Use
  Company Number: US-TAKEDA-2021TUS017282

PATIENT
  Age: 20 Year
  Sex: Female
  Weight: 86 kg

DRUGS (4)
  1. TRINTELLIX [Suspect]
     Active Substance: VORTIOXETINE HYDROBROMIDE
     Indication: ANXIETY
     Dosage: 10 MILLIGRAM, QD
     Route: 065
     Dates: start: 202101
  2. METFORMIN [Concomitant]
     Active Substance: METFORMIN HYDROCHLORIDE
     Indication: DIABETES MELLITUS
     Dosage: UNK
     Route: 065
  3. TRINTELLIX [Suspect]
     Active Substance: VORTIOXETINE HYDROBROMIDE
     Indication: DEPRESSION
     Dosage: 5 MILLIGRAM
     Route: 065
  4. TRAZODONE [Concomitant]
     Active Substance: TRAZODONE HYDROCHLORIDE
     Indication: SLEEP DISORDER
     Dosage: UNK
     Route: 065

REACTIONS (9)
  - Migraine [Unknown]
  - Pyrexia [Unknown]
  - Mood altered [Unknown]
  - Drug ineffective [Unknown]
  - Panic attack [Unknown]
  - Therapy interrupted [Unknown]
  - Depression [Unknown]
  - Crying [Unknown]
  - Arthropod bite [Unknown]

NARRATIVE: CASE EVENT DATE: 20210315
